FAERS Safety Report 16584766 (Version 2)
Quarter: 2019Q3

REPORT INFORMATION
  Report Type: Spontaneous
  Country: US (occurrence: US)
  Receive Date: 20190717
  Receipt Date: 20190815
  Transmission Date: 20191004
  Serious: No
  Sender: FDA-Public Use
  Company Number: US-ASTRAZENECA-2019SE91016

PATIENT
  Age: 29403 Day
  Sex: Female
  Weight: 59 kg

DRUGS (11)
  1. CRESTOR [Suspect]
     Active Substance: ROSUVASTATIN CALCIUM
     Indication: BLOOD TRIGLYCERIDES
     Route: 048
     Dates: start: 20181012
  2. BABY ASPIRIN [Concomitant]
     Active Substance: ASPIRIN
  3. CRESTOR [Suspect]
     Active Substance: ROSUVASTATIN CALCIUM
     Indication: ALBUMIN GLOBULIN RATIO
     Route: 048
     Dates: start: 20190516
  4. AMLODIPINE BESYLATE. [Concomitant]
     Active Substance: AMLODIPINE BESYLATE
     Indication: HYPERTENSION
     Dosage: 5.0MG UNKNOWN
  5. CRESTOR [Suspect]
     Active Substance: ROSUVASTATIN CALCIUM
     Indication: LOW DENSITY LIPOPROTEIN INCREASED
     Route: 048
     Dates: start: 20190516
  6. CRESTOR [Suspect]
     Active Substance: ROSUVASTATIN CALCIUM
     Indication: LOW DENSITY LIPOPROTEIN INCREASED
     Route: 048
     Dates: start: 20181012
  7. CRESTOR [Suspect]
     Active Substance: ROSUVASTATIN CALCIUM
     Indication: ALBUMIN GLOBULIN RATIO
     Route: 048
     Dates: start: 20181012
  8. CRESTOR [Suspect]
     Active Substance: ROSUVASTATIN CALCIUM
     Indication: BLOOD TRIGLYCERIDES
     Dosage: GENERIC ROSUVASTATIN CALCIUM
     Route: 048
  9. CRESTOR [Suspect]
     Active Substance: ROSUVASTATIN CALCIUM
     Indication: ALBUMIN GLOBULIN RATIO
     Dosage: GENERIC ROSUVASTATIN CALCIUM
     Route: 048
  10. CRESTOR [Suspect]
     Active Substance: ROSUVASTATIN CALCIUM
     Indication: LOW DENSITY LIPOPROTEIN INCREASED
     Dosage: GENERIC ROSUVASTATIN CALCIUM
     Route: 048
  11. CRESTOR [Suspect]
     Active Substance: ROSUVASTATIN CALCIUM
     Indication: BLOOD TRIGLYCERIDES
     Route: 048
     Dates: start: 20190516

REACTIONS (7)
  - Globulins decreased [Recovered/Resolved]
  - Memory impairment [Not Recovered/Not Resolved]
  - Protein total decreased [Unknown]
  - Fatigue [Not Recovered/Not Resolved]
  - Liver function test decreased [Unknown]
  - Intentional product misuse [Unknown]
  - Albumin globulin ratio increased [Recovered/Resolved]

NARRATIVE: CASE EVENT DATE: 201810
